FAERS Safety Report 25595096 (Version 1)
Quarter: 2025Q3

REPORT INFORMATION
  Report Type: Spontaneous
  Country: EU (occurrence: EU)
  Receive Date: 20250723
  Receipt Date: 20250723
  Transmission Date: 20251020
  Serious: Yes (Death, Life-Threatening, Hospitalization, Other)
  Sender: RANBAXY
  Company Number: EU-SUN PHARMACEUTICAL INDUSTRIES LTD-2025R1-518699

PATIENT
  Age: 44 Year
  Sex: Female

DRUGS (19)
  1. MANNITOL [Suspect]
     Active Substance: MANNITOL
     Indication: Pain in extremity
     Route: 065
  2. MOXONIDINE [Suspect]
     Active Substance: MOXONIDINE
     Indication: Product used for unknown indication
     Route: 065
  3. NOREPINEPHRINE BITARTRATE [Suspect]
     Active Substance: NOREPINEPHRINE BITARTRATE
     Indication: Pain in extremity
     Route: 042
  4. POTASSIUM CHLORIDE [Suspect]
     Active Substance: POTASSIUM CHLORIDE
     Indication: Blindness
     Route: 042
  5. POTASSIUM CHLORIDE [Suspect]
     Active Substance: POTASSIUM CHLORIDE
     Indication: Abdominal pain upper
  6. POTASSIUM CHLORIDE [Suspect]
     Active Substance: POTASSIUM CHLORIDE
     Indication: Vomiting
  7. SODIUM CHLORIDE [Suspect]
     Active Substance: SODIUM CHLORIDE
     Indication: Pain in extremity
     Route: 065
  8. MONOPRIL [Suspect]
     Active Substance: FOSINOPRIL SODIUM
     Indication: Blindness
     Route: 065
  9. MONOPRIL [Suspect]
     Active Substance: FOSINOPRIL SODIUM
     Indication: Blindness
     Route: 065
  10. MONOPRIL [Suspect]
     Active Substance: FOSINOPRIL SODIUM
     Indication: Abdominal pain upper
  11. MONOPRIL [Suspect]
     Active Substance: FOSINOPRIL SODIUM
     Indication: Vomiting
  12. OMEPRAZOLE [Suspect]
     Active Substance: OMEPRAZOLE
     Indication: Product used for unknown indication
     Route: 065
  13. LABETALOL HYDROCHLORIDE [Concomitant]
     Active Substance: LABETALOL HYDROCHLORIDE
     Indication: Product used for unknown indication
     Route: 042
  14. PROPOFOL [Concomitant]
     Active Substance: PROPOFOL
     Indication: Product used for unknown indication
     Route: 042
  15. THIAMINE [Concomitant]
     Active Substance: THIAMINE
     Indication: Product used for unknown indication
     Route: 042
  16. TORSEMIDE [Concomitant]
     Active Substance: TORSEMIDE
     Indication: Pain in extremity
     Route: 042
  17. TRAMADOL [Concomitant]
     Active Substance: TRAMADOL
     Indication: Blindness
     Route: 042
  18. TRAMADOL [Concomitant]
     Active Substance: TRAMADOL
     Indication: Abdominal pain upper
  19. TRAMADOL [Concomitant]
     Active Substance: TRAMADOL
     Indication: Vomiting

REACTIONS (3)
  - Drug ineffective [Fatal]
  - Condition aggravated [Fatal]
  - Cardiac arrest [Fatal]
